FAERS Safety Report 7558247-1 (Version None)
Quarter: 2011Q2

REPORT INFORMATION
  Report Type: 
  Country: None (occurrence: None)
  Receive Date: 20110620
  Receipt Date: 20110613
  Transmission Date: 20111010
  Serious: Yes (Hospitalization)
  Sender: FDA-Public Use
  Company Number: US-GILEAD-2011-0040714

PATIENT
  Age: 62 Year
  Sex: Female

DRUGS (3)
  1. VENTAVIS [Concomitant]
  2. TYVASO [Concomitant]
  3. LETAIRIS [Suspect]
     Indication: PRODUCT USED FOR UNKNOWN INDICATION
     Route: 048
     Dates: start: 20070831

REACTIONS (2)
  - SURGERY [None]
  - VERTEBRAL COLUMN MASS [None]
